FAERS Safety Report 16337352 (Version 1)
Quarter: 2019Q2

REPORT INFORMATION
  Report Type: Spontaneous
  Country: US (occurrence: US)
  Receive Date: 20190521
  Receipt Date: 20190521
  Transmission Date: 20190711
  Serious: No
  Sender: FDA-Public Use
  Company Number: US-PFIZER INC-2019213977

PATIENT
  Age: 57 Year
  Sex: Female
  Weight: 49.9 kg

DRUGS (1)
  1. PREMARIN [Suspect]
     Active Substance: ESTROGENS, CONJUGATED
     Dosage: 0.5 G, 2X/WEEK [0.5 GRAMS, TWICE A WEEK]
     Route: 067
     Dates: start: 20190507

REACTIONS (2)
  - Vulvovaginal discomfort [Unknown]
  - Expired product administered [Unknown]

NARRATIVE: CASE EVENT DATE: 20190507
